FAERS Safety Report 4546872-1 (Version None)
Quarter: 2005Q1

REPORT INFORMATION
  Report Type: 
  Country: None (occurrence: None)
  Receive Date: 20050106
  Receipt Date: 20041112
  Transmission Date: 20050727
  Serious: Yes (Hospitalization)
  Sender: FDA-Public Use
  Company Number: US-MERCK-0411USA02365

PATIENT
  Age: 52 Year
  Sex: Male

DRUGS (11)
  1. STROMECTOL [Suspect]
     Indication: ACARODERMATITIS
     Route: 048
     Dates: start: 20040101
  2. TACROLIMUS [Concomitant]
     Route: 065
     Dates: start: 20040901
  3. ASPIRIN [Concomitant]
     Route: 065
     Dates: start: 20040101
  4. NIFEDIPINE [Concomitant]
     Route: 065
     Dates: start: 20040101
  5. INSULIN [Concomitant]
     Route: 065
     Dates: start: 20040101
  6. CELLCEPT [Concomitant]
     Route: 065
     Dates: start: 20040101
  7. PREDNISONE [Concomitant]
     Route: 065
     Dates: start: 20040101
  8. VALGANCICLOVIR HYDROCHLORIDE [Concomitant]
     Route: 065
     Dates: start: 20040101
  9. RANITIDINE [Concomitant]
     Route: 065
     Dates: start: 20040101
  10. FLUCONAZOLE [Concomitant]
     Route: 065
     Dates: start: 20040101
  11. BACTRIM [Concomitant]
     Route: 065
     Dates: start: 20040101

REACTIONS (3)
  - DRUG LEVEL DECREASED [None]
  - NEPHROLITHIASIS [None]
  - RENAL PAPILLARY NECROSIS [None]
